FAERS Safety Report 19218569 (Version 1)
Quarter: 2021Q2

REPORT INFORMATION
  Report Type: Spontaneous
  Country: US (occurrence: US)
  Receive Date: 20210505
  Receipt Date: 20210505
  Transmission Date: 20210717
  Serious: No
  Sender: FDA-Public Use
  Company Number: US-GLAXOSMITHKLINE-USCH2021AMR023453

PATIENT
  Sex: Female

DRUGS (2)
  1. IBUPROFEN. [Suspect]
     Active Substance: IBUPROFEN
     Indication: DYSPHONIA
  2. IBUPROFEN. [Suspect]
     Active Substance: IBUPROFEN
     Indication: FEELING ABNORMAL
     Dosage: UNK

REACTIONS (1)
  - Product use in unapproved indication [Unknown]
